FAERS Safety Report 15836553 (Version 1)
Quarter: 2018Q4

REPORT INFORMATION
  Report Type: Spontaneous
  Country: US (occurrence: US)
  Receive Date: 20181219
  Receipt Date: 20181219
  Transmission Date: 20190205
  Serious: Yes (Hospitalization, Other)
  Sender: FDA-Public Use
  Company Number: None

PATIENT
  Age: 46 Year

DRUGS (15)
  1. FUROSEMIDE. [Concomitant]
     Active Substance: FUROSEMIDE
  2. TIZANIDINE. [Concomitant]
     Active Substance: TIZANIDINE
  3. FOLIC ACID. [Concomitant]
     Active Substance: FOLIC ACID
  4. MIRABEGRON [Concomitant]
     Active Substance: MIRABEGRON
  5. VENTOLIN HFA [Concomitant]
     Active Substance: ALBUTEROL SULFATE
  6. OXYGEN INTRANYSAL [Concomitant]
  7. UPTRAVI [Concomitant]
     Active Substance: SELEXIPAG
  8. ADEMPAS [Suspect]
     Active Substance: RIOCIGUAT
     Indication: PULMONARY ARTERIAL HYPERTENSION
     Dosage: ?          OTHER DOSE:2.5MG;?
     Route: 048
     Dates: start: 201509, end: 201811
  9. MELTHYLPREDNISOLONE [Concomitant]
  10. TRAMSDOL [Concomitant]
  11. CELLCEPT [Concomitant]
     Active Substance: MYCOPHENOLATE MOFETIL\MYCOPHENOLATE MOFETIL HYDROCHLORIDE
  12. HYD [Concomitant]
     Active Substance: GLYCERIN\NAPHAZOLINE HYDROCHLORIDE
  13. VITAMIN D3 [Concomitant]
     Active Substance: CHOLECALCIFEROL
  14. DIGOUIN [Concomitant]
  15. COMBIVENT RESPIMAT [Concomitant]
     Active Substance: ALBUTEROL SULFATE\IPRATROPIUM BROMIDE

REACTIONS (1)
  - Cardiac failure congestive [None]

NARRATIVE: CASE EVENT DATE: 20181211
